FAERS Safety Report 8532730-4 (Version None)
Quarter: 2012Q3

REPORT INFORMATION
  Report Type: 
  Country: None (occurrence: None)
  Receive Date: 20120724
  Receipt Date: 20120718
  Transmission Date: 20120928
  Serious: Yes (Hospitalization, Other)
  Sender: FDA-Public Use
  Company Number: PHHY2011CA68504

PATIENT
  Sex: Male

DRUGS (6)
  1. SANDOSTATIN LAR [Suspect]
     Indication: NEUROENDOCRINE TUMOUR
     Dosage: 20 MG, QMO
     Route: 030
     Dates: start: 20110525
  2. EVEROLIMUS [Concomitant]
     Dosage: 5 MG, QD
     Route: 048
  3. HYDROMORPHONE HCL [Concomitant]
  4. GABAPENTIN [Concomitant]
  5. METHADONE HCL [Concomitant]
  6. OMEPRAZOLE (PRISOLEC) [Concomitant]

REACTIONS (6)
  - MUSCULOSKELETAL CHEST PAIN [None]
  - HEART RATE INCREASED [None]
  - BACK PAIN [None]
  - PNEUMOTHORAX [None]
  - ABDOMINAL PAIN UPPER [None]
  - DYSPNOEA [None]
